FAERS Safety Report 18047760 (Version 2)
Quarter: 2020Q4

REPORT INFORMATION
  Report Type: Report from Study
  Country: US (occurrence: US)
  Receive Date: 20200721
  Receipt Date: 20201207
  Transmission Date: 20210113
  Serious: Yes (Hospitalization, Other)
  Sender: FDA-Public Use
  Company Number: US-BRISTOL-MYERS SQUIBB COMPANY-BMS-2020-056817

PATIENT
  Sex: Female
  Weight: 54.43 kg

DRUGS (4)
  1. APIXABAN [Suspect]
     Active Substance: APIXABAN
     Indication: CEREBROVASCULAR ACCIDENT PROPHYLAXIS
     Dosage: 5 MILLIGRAM, BID
     Route: 048
     Dates: start: 201911
  2. HUMIRA [Concomitant]
     Active Substance: ADALIMUMAB
     Indication: CROHN^S DISEASE
     Dosage: UNK,EVERY OTHER WEEK
     Route: 065
     Dates: end: 202004
  3. APIXABAN [Suspect]
     Active Substance: APIXABAN
     Indication: PULMONARY EMBOLISM
  4. LORATADINE. [Concomitant]
     Active Substance: LORATADINE
     Indication: PRODUCT USED FOR UNKNOWN INDICATION
     Dosage: UNK
     Route: 065

REACTIONS (13)
  - Renal disorder [Unknown]
  - Large intestinal obstruction [Unknown]
  - Aphonia [Unknown]
  - Malaise [Unknown]
  - Blood creatinine increased [Unknown]
  - Blood urine present [Unknown]
  - Malabsorption [Unknown]
  - Weight increased [Unknown]
  - Clostridium difficile colitis [Unknown]
  - Peripheral swelling [Unknown]
  - Abscess intestinal [Unknown]
  - Dehydration [Unknown]
  - Lung abscess [Unknown]

NARRATIVE: CASE EVENT DATE: 2020
